FAERS Safety Report 7290237-9 (Version None)
Quarter: 2011Q1

REPORT INFORMATION
  Report Type: 
  Country: None (occurrence: None)
  Receive Date: 20110209
  Receipt Date: 20110209
  Transmission Date: 20110831
  Serious: No
  Sender: FDA-Public Use
  Company Number: None

PATIENT
  Sex: Female
  Weight: 64.4108 kg

DRUGS (1)
  1. DARVOCET-N 100 [Suspect]
     Indication: ATRIAL FIBRILLATION
     Dosage: 1-2 6 HOURS MOUTH
     Route: 048

REACTIONS (2)
  - HERNIA OBSTRUCTIVE [None]
  - ATRIAL FIBRILLATION [None]
